FAERS Safety Report 9994168 (Version 1)
Quarter: 2014Q1

REPORT INFORMATION
  Report Type: Spontaneous
  Country: US (occurrence: US)
  Receive Date: 20140310
  Receipt Date: 20140310
  Transmission Date: 20141002
  Serious: Yes (Other)
  Sender: FDA-Public Use
  Company Number: US-AMGEN-USASP2014015898

PATIENT
  Age: 0 None
  Sex: Female
  Weight: 2.12 kg

DRUGS (1)
  1. ENBREL [Suspect]
     Indication: PRODUCT USED FOR UNKNOWN INDICATION
     Dosage: 50 MG, QWK
     Route: 064
     Dates: start: 2000

REACTIONS (2)
  - Feeding disorder neonatal [Recovered/Resolved]
  - Premature baby [Recovered/Resolved]
